FAERS Safety Report 12309652 (Version 2)
Quarter: 2016Q2

REPORT INFORMATION
  Report Type: Spontaneous
  Country: US (occurrence: US)
  Receive Date: 20160427
  Receipt Date: 20160621
  Transmission Date: 20160815
  Serious: No
  Sender: FDA-Public Use
  Company Number: US-009507513-1604USA015125

PATIENT
  Sex: Male
  Weight: 20.32 kg

DRUGS (1)
  1. ASMANEX [Suspect]
     Active Substance: MOMETASONE FUROATE
     Indication: ASTHMA
     Dosage: ONE INHALATION/ONCE A DAY AT NIGHT
     Route: 055
     Dates: start: 201512

REACTIONS (3)
  - No adverse event [Unknown]
  - Product container issue [Unknown]
  - Drug dose omission [Unknown]
